FAERS Safety Report 8570957-6 (Version None)
Quarter: 2012Q3

REPORT INFORMATION
  Report Type: 
  Country: None (occurrence: None)
  Receive Date: 20120806
  Receipt Date: 20120727
  Transmission Date: 20120928
  Serious: No
  Sender: FDA-Public Use
  Company Number: US-BIOGENIDEC-2012BI028352

PATIENT
  Sex: Female

DRUGS (4)
  1. AVONEX [Concomitant]
     Indication: MULTIPLE SCLEROSIS
     Route: 030
  2. TYSABRI [Suspect]
     Indication: MULTIPLE SCLEROSIS
     Route: 042
     Dates: start: 20110610, end: 20111116
  3. AVONEX [Concomitant]
     Route: 030
     Dates: end: 20101230
  4. AVONEX [Concomitant]
     Route: 030
     Dates: start: 20100707

REACTIONS (1)
  - QUADRIPLEGIA [None]
